FAERS Safety Report 23446994 (Version 5)
Quarter: 2024Q2

REPORT INFORMATION
  Report Type: Spontaneous
  Country: US (occurrence: US)
  Receive Date: 20240126
  Receipt Date: 20240529
  Transmission Date: 20240716
  Serious: Yes (Other)
  Sender: FDA-Public Use
  Company Number: US-KARYOPHARM-2023KPT002176

PATIENT

DRUGS (11)
  1. XPOVIO [Suspect]
     Active Substance: SELINEXOR
     Indication: Plasma cell myeloma
     Dosage: 50 MG, WEEKLY
     Route: 048
     Dates: start: 202306, end: 2023
  2. XPOVIO [Suspect]
     Active Substance: SELINEXOR
     Dosage: 40 MG, WEEKLY
     Route: 048
  3. XPOVIO [Suspect]
     Active Substance: SELINEXOR
     Dosage: 40 MG, WEEKLY
     Route: 048
  4. BACTRIM [Concomitant]
     Active Substance: SULFAMETHOXAZOLE\TRIMETHOPRIM
  5. DEXAMETHASONE [Concomitant]
     Active Substance: DEXAMETHASONE
  6. KYPROLIS [Concomitant]
     Active Substance: CARFILZOMIB
  7. ONDANSETRON [Concomitant]
     Active Substance: ONDANSETRON
  8. PROCHLORPERAZINE [Concomitant]
     Active Substance: PROCHLORPERAZINE
  9. VALTREX [Concomitant]
     Active Substance: VALACYCLOVIR HYDROCHLORIDE
  10. POTASSIUM CHLORIDE [Concomitant]
     Active Substance: POTASSIUM CHLORIDE
  11. ASPIRIN [Concomitant]
     Active Substance: ASPIRIN

REACTIONS (5)
  - Femur fracture [Not Recovered/Not Resolved]
  - Decreased appetite [Unknown]
  - Diarrhoea [Not Recovered/Not Resolved]
  - Nausea [Not Recovered/Not Resolved]
  - Product dose omission in error [Unknown]

NARRATIVE: CASE EVENT DATE: 20230101
